FAERS Safety Report 6271882-6 (Version None)
Quarter: 2009Q3

REPORT INFORMATION
  Report Type: 
  Country: None (occurrence: None)
  Receive Date: 20090717
  Receipt Date: 20090708
  Transmission Date: 20100115
  Serious: Yes (Hospitalization)
  Sender: FDA-Public Use
  Company Number: PHHO2009DE04207

PATIENT
  Sex: Male
  Weight: 83 kg

DRUGS (7)
  1. ALISKIREN ALI+TAB [Suspect]
     Indication: ACUTE CORONARY SYNDROME
     Dosage: 75MG (VISIT 5)
     Route: 048
  2. ALISKIREN ALI+TAB [Suspect]
     Dosage: 150MG (VISIT 6)
  3. DIOVAN T30230+ [Suspect]
     Indication: CARDIAC FAILURE
     Dosage: 80MG (VISIT 2)
     Dates: start: 20090128
  4. DIOVAN T30230+ [Suspect]
     Dosage: 160MG (VISIT 3)
  5. DIOVAN T30230+ [Suspect]
     Dosage: 320MG (VISIT 4)
  6. DIOVAN T30230+ [Suspect]
     Dosage: 320MG (VISIT 5)
  7. DIOVAN T30230+ [Suspect]
     Dosage: 320MG (VISIT 6)

REACTIONS (1)
  - SYNCOPE [None]
